FAERS Safety Report 24222759 (Version 1)
Quarter: 2024Q3

REPORT INFORMATION
  Report Type: Spontaneous
  Country: TR (occurrence: TR)
  Receive Date: 20240819
  Receipt Date: 20240819
  Transmission Date: 20241017
  Serious: Yes (Other)
  Sender: PURACAP
  Company Number: TR-PURACAP-TR-2024EPCLIT00985

PATIENT
  Age: 14 Year

DRUGS (1)
  1. IBUPROFEN [Suspect]
     Active Substance: IBUPROFEN
     Indication: Product used for unknown indication
     Route: 048

REACTIONS (2)
  - Angioedema [Unknown]
  - Urticaria [Unknown]
